FAERS Safety Report 24677200 (Version 1)
Quarter: 2024Q4

REPORT INFORMATION
  Report Type: Spontaneous
  Country: US (occurrence: US)
  Receive Date: 20241129
  Receipt Date: 20241129
  Transmission Date: 20250114
  Serious: No
  Sender: ALEXION PHARMACEUTICALS
  Company Number: US-HALEON-2196960

PATIENT

DRUGS (1)
  1. NEXIUM 24HR [Suspect]
     Active Substance: ESOMEPRAZOLE MAGNESIUM
     Dosage: EXPDATE:20251231 1 - CAPSULES (CPS)

REACTIONS (3)
  - Dyspepsia [Unknown]
  - Condition aggravated [Unknown]
  - Drug effect less than expected [Unknown]
